FAERS Safety Report 21692852 (Version 3)
Quarter: 2022Q4

REPORT INFORMATION
  Report Type: Spontaneous
  Country: US (occurrence: US)
  Receive Date: 20221207
  Receipt Date: 20221230
  Transmission Date: 20230112
  Serious: No
  Sender: FDA-Public Use
  Company Number: US-BRISTOL-MYERS SQUIBB COMPANY-2022-149146

PATIENT
  Age: 69 Year
  Sex: Male

DRUGS (2)
  1. SPRYCEL [Suspect]
     Active Substance: DASATINIB
     Indication: Chronic myeloid leukaemia
     Route: 048
     Dates: start: 202211
  2. SPRYCEL [Suspect]
     Active Substance: DASATINIB

REACTIONS (8)
  - Dyspnoea [Unknown]
  - Feeling abnormal [Unknown]
  - Fluid retention [Unknown]
  - Nausea [Unknown]
  - Dizziness [Unknown]
  - Rales [Unknown]
  - Oedema peripheral [Unknown]
  - Peripheral swelling [Unknown]
